FAERS Safety Report 12836296 (Version 2)
Quarter: 2016Q4

REPORT INFORMATION
  Report Type: Spontaneous
  Country: US (occurrence: US)
  Receive Date: 20161011
  Receipt Date: 20161011
  Transmission Date: 20170207
  Serious: Yes (Hospitalization, Other)
  Sender: FDA-Public Use
  Company Number: US-GLAXOSMITHKLINE-US2016147712

PATIENT
  Sex: Female

DRUGS (4)
  1. INCRUSE ELLIPTA [Suspect]
     Active Substance: UMECLIDINIUM BROMIDE
     Indication: CHRONIC OBSTRUCTIVE PULMONARY DISEASE
     Dosage: 1 DF, U
     Dates: start: 201609
  2. ADVAIR DISKUS [Suspect]
     Active Substance: FLUTICASONE PROPIONATE\SALMETEROL XINAFOATE
     Dosage: 1 DF, 1D
     Dates: start: 2006
  3. ALBUTEROL. [Concomitant]
     Active Substance: ALBUTEROL
  4. INCRUSE ELLIPTA [Suspect]
     Active Substance: UMECLIDINIUM BROMIDE
     Indication: PNEUMONIA

REACTIONS (9)
  - Condition aggravated [Unknown]
  - Intentional underdose [Unknown]
  - Oesophageal pain [Recovered/Resolved]
  - Wheezing [Not Recovered/Not Resolved]
  - Pneumonia [Recovered/Resolved]
  - Tongue discomfort [Unknown]
  - Drug dose omission [Unknown]
  - Intentional product use issue [Unknown]
  - Dyspnoea [Not Recovered/Not Resolved]

NARRATIVE: CASE EVENT DATE: 2016
